FAERS Safety Report 19566380 (Version 1)
Quarter: 2021Q3

REPORT INFORMATION
  Report Type: Spontaneous
  Country: JP (occurrence: JP)
  Receive Date: 20210716
  Receipt Date: 20210716
  Transmission Date: 20211014
  Serious: Yes (Hospitalization, Other)
  Sender: FDA-Public Use
  Company Number: JP-INDICUS PHARMA-000798

PATIENT
  Age: 29 Year
  Sex: Female
  Weight: 48 kg

DRUGS (2)
  1. CABERGOLINE. [Concomitant]
     Active Substance: CABERGOLINE
     Indication: BREAST CANCER
     Dosage: AFTER OOCYTE RETRIEVAL
  2. LETROZOLE. [Suspect]
     Active Substance: LETROZOLE
     Indication: BREAST CANCER
     Dosage: 5.0 MG/DAY

REACTIONS (3)
  - Haemoperitoneum [Unknown]
  - Ovarian rupture [Unknown]
  - Ovarian haemorrhage [Unknown]
